FAERS Safety Report 7483306-1 (Version None)
Quarter: 2011Q2

REPORT INFORMATION
  Report Type: 
  Country: None (occurrence: None)
  Receive Date: 20110517
  Receipt Date: 20110502
  Transmission Date: 20111010
  Serious: Yes (Hospitalization, Other)
  Sender: FDA-Public Use
  Company Number: US-BAYER-201026298NA

PATIENT
  Age: 40 Year
  Sex: Female
  Weight: 84 kg

DRUGS (9)
  1. FLUOXETINE [Concomitant]
     Dosage: 20 MG, UNK
     Route: 048
  2. ASPIRIN [Concomitant]
     Dosage: 81 MG, UNK
     Route: 048
  3. VYTORIN [Concomitant]
     Dosage: 20 MG, UNK
     Route: 048
  4. LORAZEPAM [Concomitant]
     Dosage: 1 MG, UNK
     Route: 048
  5. AMBIEN CR [Concomitant]
     Dosage: 12.5 UNK, UNK
     Route: 048
  6. LEVAQUIN [Concomitant]
     Dosage: 750 MG, QD
     Dates: start: 20080626
  7. HYDROCODONE BITARTRATE AND ACETAMINOPHEN [Concomitant]
     Route: 048
  8. YAZ [Suspect]
     Indication: CONTRACEPTION
     Route: 048
     Dates: start: 20070213, end: 20080630
  9. BENAZEPRIL HYDROCHLORIDE [Concomitant]
     Dosage: UNK
     Route: 048

REACTIONS (3)
  - PULMONARY EMBOLISM [None]
  - DYSPNOEA [None]
  - CHEST PAIN [None]
